FAERS Safety Report 9709818 (Version 1)
Quarter: 2013Q4

REPORT INFORMATION
  Report Type: Spontaneous
  Country: US (occurrence: US)
  Receive Date: 20131126
  Receipt Date: 20131126
  Transmission Date: 20140711
  Serious: No
  Sender: FDA-Public Use
  Company Number: US-PFIZER INC-2013333112

PATIENT
  Age: 67 Year
  Sex: Male
  Weight: 97.51 kg

DRUGS (1)
  1. ADVIL [Suspect]
     Indication: BONE PAIN
     Dosage: 200 MG, ONCE
     Route: 048
     Dates: start: 20131118, end: 20131118

REACTIONS (1)
  - Drug effect incomplete [Unknown]
